FAERS Safety Report 20066611 (Version 1)
Quarter: 2021Q4

REPORT INFORMATION
  Report Type: Spontaneous
  Country: US (occurrence: US)
  Receive Date: 20211115
  Receipt Date: 20211115
  Transmission Date: 20220303
  Serious: Yes (Life-Threatening, Hospitalization)
  Sender: FDA-Public Use
  Company Number: US-JNJFOC-20211108801

PATIENT
  Age: 21 Year
  Sex: Female
  Weight: 111 kg

DRUGS (3)
  1. TYLENOL [Suspect]
     Active Substance: ACETAMINOPHEN
     Indication: Abdominal pain
     Dosage: TOTAL DOSE OF 36000 MG (9000 MG/DAY FOR OVER A PERIOD OF 4 DAYS) FOR CHRONIC USE FROM 02-SEP-2002 TO
     Route: 048
     Dates: start: 20020902, end: 20020905
  2. VICODIN [Suspect]
     Active Substance: ACETAMINOPHEN\HYDROCODONE BITARTRATE
     Indication: Product used for unknown indication
     Dosage: 4 TABLETS OF VICODIN (HYDROCODONE BITARTRATE 5MG /ACETAMINOPHEN 500MG) (TAKEN ON 04-SEP-2002)
     Route: 048
     Dates: start: 20020904, end: 20020904
  3. UNSPECIFIED INGREDIENT [Concomitant]
     Active Substance: UNSPECIFIED INGREDIENT
     Indication: Product used for unknown indication
     Route: 048
     Dates: end: 20020905

REACTIONS (8)
  - Acute hepatic failure [Recovering/Resolving]
  - Blood creatinine increased [Recovering/Resolving]
  - Blood potassium decreased [Recovering/Resolving]
  - Blood bicarbonate decreased [Recovering/Resolving]
  - Pneumonia [Recovering/Resolving]
  - Brain oedema [Recovering/Resolving]
  - Product administration error [Recovering/Resolving]
  - Accidental overdose [Recovering/Resolving]
